FAERS Safety Report 5422473-8 (Version None)
Quarter: 2007Q3

REPORT INFORMATION
  Report Type: 
  Country: None (occurrence: None)
  Receive Date: 20070822
  Receipt Date: 20070810
  Transmission Date: 20080115
  Serious: Yes (Other)
  Sender: FDA-Public Use
  Company Number: BR-ROCHE-511612

PATIENT
  Age: 49 Year
  Sex: Male
  Weight: 64 kg

DRUGS (8)
  1. CLONAZEPAM [Suspect]
     Indication: INSOMNIA
     Route: 048
     Dates: start: 20030501
  2. CLONAZEPAM [Suspect]
     Dosage: DOSAGE WAS DECREASED
     Route: 048
     Dates: start: 20030304, end: 20030501
  3. DORMONID [Suspect]
     Route: 048
     Dates: start: 20060201
  4. CIALIS [Concomitant]
     Indication: LIBIDO DECREASED
     Dates: start: 20040101
  5. AMITRIPTYLINE HYDROCHLORIDE [Concomitant]
     Dosage: DRUG: NEUROTRYPT
     Route: 048
  6. TENADREN [Concomitant]
     Indication: BLOOD PRESSURE ABNORMAL
     Dosage: STRENGTH: 40 MG/ 5MG
     Route: 048
  7. XALACOM [Concomitant]
     Dosage: ONE DROP PER EYE
     Route: 047
  8. SOMALGIN [Concomitant]

REACTIONS (5)
  - BLOOD GLUCOSE INCREASED [None]
  - BLOOD TRIGLYCERIDES DECREASED [None]
  - GLAUCOMA [None]
  - LIBIDO DECREASED [None]
  - NIGHTMARE [None]
